FAERS Safety Report 5608223-0 (Version None)
Quarter: 2008Q1

REPORT INFORMATION
  Report Type: 
  Country: None (occurrence: None)
  Receive Date: 20080130
  Receipt Date: 20080122
  Transmission Date: 20080703
  Serious: Yes (Hospitalization)
  Sender: FDA-Public Use
  Company Number: US-GENENTECH-254705

PATIENT
  Sex: Male
  Weight: 79.138 kg

DRUGS (2)
  1. BEVACIZUMAB [Suspect]
     Indication: COLORECTAL CANCER
     Dosage: 5 MG/KG, Q2W
     Route: 042
     Dates: start: 20070827, end: 20071224
  2. XELODA [Suspect]
     Indication: COLORECTAL CANCER
     Dosage: 2000 MG, BID
     Route: 048
     Dates: start: 20070727, end: 20080103

REACTIONS (1)
  - ENCEPHALOPATHY [None]
